FAERS Safety Report 25617177 (Version 1)
Quarter: 2025Q3

REPORT INFORMATION
  Report Type: Report from Study
  Country: US (occurrence: US)
  Receive Date: 20250729
  Receipt Date: 20250729
  Transmission Date: 20251021
  Serious: Yes (Other)
  Sender: ALEXION PHARMACEUTICALS
  Company Number: US-AstraZeneca-CH-00916155A

PATIENT
  Sex: Female

DRUGS (1)
  1. ULTOMIRIS [Suspect]
     Active Substance: RAVULIZUMAB-CWVZ
     Indication: Neuromyelitis optica spectrum disorder
     Route: 065

REACTIONS (7)
  - Cardiac failure congestive [Unknown]
  - Neuromyelitis optica spectrum disorder [Unknown]
  - Anxiety [Unknown]
  - Insomnia [Unknown]
  - Dyspnoea [Unknown]
  - Urinary tract infection [Unknown]
  - Asthenia [Unknown]
